FAERS Safety Report 14856762 (Version 1)
Quarter: 2018Q2

REPORT INFORMATION
  Report Type: Spontaneous
  Country: US (occurrence: US)
  Receive Date: 20180507
  Receipt Date: 20180507
  Transmission Date: 20180711
  Serious: No
  Sender: FDA-Public Use
  Company Number: US-ROCHE-2019920

PATIENT
  Sex: Male

DRUGS (13)
  1. VYTORIN [Concomitant]
     Active Substance: EZETIMIBE\SIMVASTATIN
  2. COREG [Concomitant]
     Active Substance: CARVEDILOL
     Route: 065
  3. SULFASALAZINE. [Concomitant]
     Active Substance: SULFASALAZINE
  4. LASIX [Concomitant]
     Active Substance: FUROSEMIDE
     Route: 065
  5. METFORMIN [Concomitant]
     Active Substance: METFORMIN HYDROCHLORIDE
     Route: 065
  6. ESBRIET [Suspect]
     Active Substance: PIRFENIDONE
     Indication: PRODUCT USED FOR UNKNOWN INDICATION
     Route: 048
     Dates: start: 20170621
  7. AMARYL [Concomitant]
     Active Substance: GLIMEPIRIDE
  8. CLOBETASOL PROPIONATE. [Concomitant]
     Active Substance: CLOBETASOL PROPIONATE
  9. GABAPENTINE [Concomitant]
     Active Substance: GABAPENTIN
     Route: 065
  10. LISINOPRIL. [Concomitant]
     Active Substance: LISINOPRIL
  11. NOVOLOG [Concomitant]
     Active Substance: INSULIN ASPART
  12. ASPIRIN. [Concomitant]
     Active Substance: ASPIRIN
  13. LANTUS [Concomitant]
     Active Substance: INSULIN GLARGINE
     Route: 065

REACTIONS (2)
  - Nausea [Recovered/Resolved]
  - Diarrhoea [Recovered/Resolved]
